FAERS Safety Report 26051290 (Version 1)
Quarter: 2025Q4

REPORT INFORMATION
  Report Type: Spontaneous
  Country: EU (occurrence: EU)
  Receive Date: 20251117
  Receipt Date: 20251117
  Transmission Date: 20260118
  Serious: Yes (Other)
  Sender: TEVA
  Company Number: None

PATIENT
  Age: 64 Year
  Sex: Female

DRUGS (1)
  1. ALENDRONIC ACID [Suspect]
     Active Substance: ALENDRONIC ACID
     Indication: Osteoporosis
     Dosage: 1 X PER WEEK 1 TABLET, ALENDRONINEZUUR TABLET 70MG / BRAND NAME NOT SPECIFIED
     Route: 048
     Dates: start: 20250916, end: 20251031

REACTIONS (1)
  - Dental restoration failure [Unknown]
